FAERS Safety Report 11622243 (Version 1)
Quarter: 2015Q4

REPORT INFORMATION
  Report Type: Spontaneous
  Country: US (occurrence: US)
  Receive Date: 20151013
  Receipt Date: 20151013
  Transmission Date: 20160304
  Serious: No
  Sender: FDA-Public Use
  Company Number: US-JNJFOC-20150906276

PATIENT
  Age: 1 Month
  Sex: Male

DRUGS (2)
  1. MOTRIN INFANTS [Suspect]
     Active Substance: IBUPROFEN
     Indication: INFLUENZA
     Route: 065
  2. MOTRIN INFANTS [Suspect]
     Active Substance: IBUPROFEN
     Indication: NASOPHARYNGITIS
     Route: 065

REACTIONS (2)
  - Drug administered to patient of inappropriate age [Unknown]
  - Self-medication [Unknown]
